FAERS Safety Report 6672772-7 (Version None)
Quarter: 2010Q2

REPORT INFORMATION
  Report Type: 
  Country: None (occurrence: None)
  Receive Date: 20100408
  Receipt Date: 20100329
  Transmission Date: 20101027
  Serious: Yes (Hospitalization)
  Sender: FDA-Public Use
  Company Number: DE-SANOFI-AVENTIS-2009SA010541

PATIENT
  Age: 54 Year
  Sex: Female
  Weight: 90 kg

DRUGS (12)
  1. DOCETAXEL [Suspect]
     Indication: BREAST CANCER
     Route: 041
     Dates: start: 20091125, end: 20091125
  2. DOCETAXEL [Suspect]
     Route: 041
  3. DOCETAXEL [Suspect]
     Route: 041
     Dates: start: 20100106, end: 20100106
  4. LEVOTHYROXINE SODIUM [Concomitant]
     Indication: HYPOTHYROIDISM
     Route: 048
  5. SIMVASTATIN [Concomitant]
  6. DEXAMETHASONE [Concomitant]
     Indication: DRUG USE FOR UNKNOWN INDICATION
     Dosage: PREMEDICATION ALL CYCLES, IV/PO
  7. ONDANSETRON [Concomitant]
     Indication: DRUG USE FOR UNKNOWN INDICATION
     Dosage: PREMEDICATION ALL CYCLES, IV/PO
  8. PANTOPRAZOLE SODIUM [Concomitant]
     Indication: DRUG USE FOR UNKNOWN INDICATION
     Dosage: PREMEDICATION ALL CYCLES
     Route: 048
  9. AMPICILLIN AND SULBACTAM [Concomitant]
     Route: 048
     Dates: start: 20091104, end: 20091108
  10. IBUPROFEN [Concomitant]
     Indication: PAIN
     Dates: start: 20090928, end: 20091204
  11. AMOXICILLIN [Concomitant]
     Indication: INFECTION
     Route: 048
     Dates: start: 20091007, end: 20091014
  12. NEULASTA [Concomitant]
     Dates: start: 20091126

REACTIONS (8)
  - BONE PAIN [None]
  - CRANIAL NERVE DISORDER [None]
  - HEADACHE [None]
  - LYMPHOEDEMA [None]
  - PAIN [None]
  - PARAESTHESIA [None]
  - VISUAL IMPAIRMENT [None]
  - VOMITING [None]
